FAERS Safety Report 8408856 (Version 2)
Quarter: 2012Q4

REPORT INFORMATION
  Report Type: Spontaneous
  Country: US (occurrence: None)
  Receive Date: 20111227
  Receipt Date: 20120426
  Transmission Date: 20130627
  Serious: Yes (Other)
  Sender: FDA-Public Use
  Company Number: PHHY2011US69600

PATIENT
  Age: 63 Year
  Sex: Female
  Weight: 59.9 kg

DRUGS (4)
  1. GILENYA [Suspect]
     Indication: RELAPSING-REMITTING MULTIPLE SCLEROSIS
     Route: 048
     Dates: start: 20110629, end: 20120131
  2. METFORMIN [Concomitant]
  3. LISINOPRIL [Concomitant]
  4. SIMVASTATIN [Concomitant]

REACTIONS (10)
  - Chills [None]
  - Burning sensation [None]
  - Influenza like illness [None]
  - Myalgia [None]
  - Lymphadenopathy [None]
  - Pyrexia [None]
  - Macular oedema [None]
  - Temperature regulation disorder [None]
  - Visual acuity reduced [None]
  - Fatigue [None]
